FAERS Safety Report 15543017 (Version 2)
Quarter: 2018Q4

REPORT INFORMATION
  Report Type: Spontaneous
  Country: FR (occurrence: FR)
  Receive Date: 20181023
  Receipt Date: 20181023
  Transmission Date: 20190205
  Serious: Yes (Death, Hospitalization)
  Sender: FDA-Public Use
  Company Number: FR-PFIZER INC-2018429876

PATIENT
  Age: 88 Year
  Sex: Female
  Weight: 58 kg

DRUGS (11)
  1. KARDEGIC [Concomitant]
     Active Substance: ASPIRIN DL-LYSINE
     Dosage: UNK
     Route: 048
     Dates: end: 20180922
  2. SEROPLEX [Concomitant]
     Active Substance: ESCITALOPRAM OXALATE
     Dosage: 15 MG, 1X/DAY
     Route: 048
     Dates: end: 20180922
  3. URBANYL [Concomitant]
     Active Substance: CLOBAZAM
     Dosage: 5 MG, 1X/DAY
     Route: 048
     Dates: end: 20180922
  4. CELEBREX [Suspect]
     Active Substance: CELECOXIB
     Indication: ARTHRALGIA
     Dosage: UNK
     Route: 048
     Dates: start: 20180907, end: 20180911
  5. CODOLIPRANE [Concomitant]
     Active Substance: ACETAMINOPHEN\CODEINE PHOSPHATE
     Indication: ARTHRALGIA
     Dosage: UNK
     Route: 048
     Dates: start: 20180907, end: 20180921
  6. LEVOTHYROX [Concomitant]
     Active Substance: LEVOTHYROXINE
     Dosage: UNK
     Route: 048
     Dates: end: 20180922
  7. PANTOPRAZOLE [Concomitant]
     Active Substance: PANTOPRAZOLE
     Dosage: 20 MG, 1X/DAY
     Route: 048
     Dates: end: 20180922
  8. DOLIPRANE [Concomitant]
     Active Substance: ACETAMINOPHEN
     Dosage: 1000 MG, 1X/DAY
     Route: 048
     Dates: end: 20180922
  9. VITAMINE B12 ALLERGAN [Concomitant]
     Dosage: 1 DF, WEEKLY
     Route: 030
     Dates: end: 20180922
  10. FUROSEMIDE. [Suspect]
     Active Substance: FUROSEMIDE
     Dosage: UNK
     Route: 048
     Dates: end: 20180922
  11. RAMIPRIL. [Suspect]
     Active Substance: RAMIPRIL
     Dosage: 1.5 MG, DAILY
     Route: 048
     Dates: end: 20180922

REACTIONS (2)
  - Acute kidney injury [Fatal]
  - Multiple organ dysfunction syndrome [Fatal]

NARRATIVE: CASE EVENT DATE: 20180922
